FAERS Safety Report 17408338 (Version 3)
Quarter: 2020Q2

REPORT INFORMATION
  Report Type: Spontaneous
  Country: US (occurrence: US)
  Receive Date: 20200212
  Receipt Date: 20200618
  Transmission Date: 20200713
  Serious: Yes (Other)
  Sender: FDA-Public Use
  Company Number: US-PFIZER INC-2020057485

PATIENT
  Age: 68 Year
  Sex: Male

DRUGS (1)
  1. XELJANZ XR [Suspect]
     Active Substance: TOFACITINIB CITRATE
     Indication: RHEUMATOID ARTHRITIS
     Dosage: 11 MG, DAILY
     Route: 048
     Dates: start: 20191010

REACTIONS (6)
  - Libido increased [Unknown]
  - Sexually inappropriate behaviour [Unknown]
  - Product dose omission [Unknown]
  - Suicide attempt [Unknown]
  - Cholecystitis [Unknown]
  - Intentional self-injury [Unknown]

NARRATIVE: CASE EVENT DATE: 202002
